FAERS Safety Report 7888034-6 (Version None)
Quarter: 2011Q4

REPORT INFORMATION
  Report Type: 
  Country: None (occurrence: None)
  Receive Date: 20111103
  Receipt Date: 20111028
  Transmission Date: 20120403
  Serious: Yes (Other)
  Sender: FDA-Public Use
  Company Number: US-JNJFOC-20111012812

PATIENT
  Sex: Female
  Weight: 97.52 kg

DRUGS (9)
  1. CALTRATE GUMMY BITES [Suspect]
     Indication: VITAMIN SUPPLEMENTATION
     Route: 048
     Dates: start: 20111005, end: 20111005
  2. ASMANEX TWISTHALER [Concomitant]
     Route: 065
  3. ZYRTEC [Concomitant]
     Route: 065
  4. LEVAQUIN [Suspect]
     Indication: RESPIRATORY DISORDER
     Route: 048
     Dates: start: 20111005
  5. LEVAQUIN [Suspect]
     Indication: ASTHMA
     Route: 048
     Dates: start: 20111005
  6. CALTRATE GUMMY BITES [Suspect]
     Indication: MINERAL SUPPLEMENTATION
     Route: 048
     Dates: start: 20111005, end: 20111005
  7. SINGULAIR [Concomitant]
     Route: 065
  8. AFRIN [Concomitant]
     Route: 065
  9. PREDNISONE [Concomitant]
     Route: 065

REACTIONS (5)
  - PRURITUS [None]
  - SWOLLEN TONGUE [None]
  - DYSPNOEA [None]
  - URTICARIA [None]
  - OEDEMA MOUTH [None]
